FAERS Safety Report 9579900 (Version 1)
Quarter: 2013Q3

REPORT INFORMATION
  Report Type: Spontaneous
  Country: US (occurrence: None)
  Receive Date: 20130930
  Receipt Date: 20130930
  Transmission Date: 20140515
  Serious: No
  Sender: FDA-Public Use
  Company Number: None

PATIENT
  Age: 31 Year
  Sex: Female
  Weight: 81.65 kg

DRUGS (2)
  1. VENLAFAXINE [Suspect]
     Indication: DEPRESSION
     Dosage: 1 OF EACH MG TWICE DAILY
     Route: 048
     Dates: start: 20130411, end: 20130927
  2. VENLAFAXINE [Suspect]
     Indication: ANXIETY
     Dosage: 1 OF EACH MG TWICE DAILY
     Route: 048
     Dates: start: 20130411, end: 20130927

REACTIONS (3)
  - Dry mouth [None]
  - Loss of libido [None]
  - Anorgasmia [None]
